FAERS Safety Report 8429659-9 (Version None)
Quarter: 2012Q2

REPORT INFORMATION
  Report Type: 
  Country: None (occurrence: None)
  Receive Date: 20120612
  Receipt Date: 20120604
  Transmission Date: 20120825
  Serious: Yes (Hospitalization)
  Sender: FDA-Public Use
  Company Number: FR-ASTRAZENECA-2012SE37530

PATIENT
  Age: 24282 Day
  Sex: Female

DRUGS (7)
  1. TEGRETOL [Concomitant]
     Dosage: LONG LASTING TREATMENT, 400 MG THREE TIMES A DAY
     Route: 048
  2. ANAFRANIL [Concomitant]
     Dosage: LONG LASTING TREATMENT, 25 MG DAILY
     Route: 048
  3. QUETIAPINE FUMARATE [Suspect]
     Route: 048
     Dates: start: 20120212, end: 20120216
  4. QUETIAPINE FUMARATE [Suspect]
     Route: 048
     Dates: start: 20120207, end: 20120211
  5. LEXOMIL ROCHE [Concomitant]
     Dosage: LONG LASTING TREATMENT, 0.5 DF THREE TIMES A DAY
     Route: 048
  6. LEVOTHYROXINE SODIUM [Concomitant]
     Dosage: LONG LASTING TREATMENT, 50 UG DAILY
     Route: 048
  7. HALDOL [Concomitant]
     Dosage: LONG LASTING TREATMENT, 3 DF EVERY DAY
     Route: 048

REACTIONS (1)
  - CHOLESTASIS [None]
